FAERS Safety Report 18284792 (Version 2)
Quarter: 2020Q3

REPORT INFORMATION
  Report Type: Report from Study
  Country: None (occurrence: DK)
  Receive Date: 20200918
  Receipt Date: 20200921
  Transmission Date: 20201103
  Serious: Yes (Death, Life-Threatening, Hospitalization)
  Sender: FDA-Public Use
  Company Number: DK-ABBVIE-19P-044-2632346-00

PATIENT
  Age: 80 Year
  Sex: Male
  Weight: 62 kg

DRUGS (28)
  1. VENETOCLAX. [Suspect]
     Active Substance: VENETOCLAX
     Indication: CHRONIC LYMPHOCYTIC LEUKAEMIA
     Route: 048
  2. PANODIL [Concomitant]
     Active Substance: ACETAMINOPHEN
     Indication: LUMBAR VERTEBRAL FRACTURE
     Route: 048
     Dates: start: 20181212
  3. MORPHINE [Concomitant]
     Active Substance: MORPHINE
     Indication: CEREBRAL HAEMORRHAGE
     Route: 048
     Dates: start: 20181211
  4. DIGOXIN. [Concomitant]
     Active Substance: DIGOXIN
     Indication: ATRIAL FIBRILLATION
     Route: 065
  5. METRONIDAZOLE. [Concomitant]
     Active Substance: METRONIDAZOLE
     Indication: CEREBRAL HAEMORRHAGE
     Route: 065
  6. NOVORAPID [Concomitant]
     Active Substance: INSULIN ASPART
     Indication: CEREBRAL HAEMORRHAGE
     Route: 065
  7. FLUTICASONE. [Concomitant]
     Active Substance: FLUTICASONE
     Indication: PROPHYLAXIS
     Dosage: 1 DOSE DAILY IN EACH NOSTRIL FOR 120 DAYS
     Route: 045
     Dates: start: 20181001
  8. ELOCON [Concomitant]
     Active Substance: MOMETASONE FUROATE
     Indication: PUSTULAR PSORIASIS
     Route: 003
     Dates: start: 20180927
  9. IMDUR [Concomitant]
     Active Substance: ISOSORBIDE MONONITRATE
     Indication: PRODUCT USED FOR UNKNOWN INDICATION
     Dosage: IN THE MORNING
     Route: 048
     Dates: start: 20180324
  10. NITROLINGUAL [Concomitant]
     Active Substance: NITROGLYCERIN
     Indication: MYOCARDIAL ISCHAEMIA
     Dosage: IN THE MORNING
     Route: 060
     Dates: start: 20180323
  11. FRESUBIN [Concomitant]
     Active Substance: AMINO ACIDS\DEXTROSE\ELECTROLYTES NOS\SOYBEAN OIL\VITAMINS
     Indication: PRODUCT USED FOR UNKNOWN INDICATION
     Dosage: OTHER NUTRITION AGENTS (FRESUBIN) 2 KCAL DRINK
     Route: 048
     Dates: start: 20181213
  12. ALLOPURINOL. [Concomitant]
     Active Substance: ALLOPURINOL
     Indication: PRODUCT USED FOR UNKNOWN INDICATION
     Dosage: IN THE MORNING
     Route: 048
     Dates: start: 20181114
  13. CARBAMAZEPINE. [Concomitant]
     Active Substance: CARBAMAZEPINE
     Indication: EPILEPSY
     Dosage: IN THE MORNING
     Route: 048
     Dates: start: 20180323
  14. ACITRETIN. [Concomitant]
     Active Substance: ACITRETIN
     Indication: PUSTULAR PSORIASIS
     Route: 065
  15. PIPERACILLIN/TAZOBACTAM [Concomitant]
     Active Substance: PIPERACILLIN SODIUM\TAZOBACTAM SODIUM
     Indication: CEREBRAL HAEMORRHAGE
     Route: 065
  16. IBRUTINIB [Suspect]
     Active Substance: IBRUTINIB
     Indication: CHRONIC LYMPHOCYTIC LEUKAEMIA
     Dosage: 1 IN 1 DAY DAILY FOR 28 DAYS TILL 30?JAN?2019
     Route: 048
     Dates: start: 20181120, end: 20190111
  17. ATORVASTATIN [Concomitant]
     Active Substance: ATORVASTATIN
     Indication: MYOCARDIAL ISCHAEMIA
     Dates: start: 20181212
  18. ENALAPRIL [Concomitant]
     Active Substance: ENALAPRIL
     Indication: MYOCARDIAL ISCHAEMIA
     Dosage: IN THE MORNING
     Route: 048
     Dates: start: 20180323
  19. OXYCODONE HYDROCHLORIDE. [Concomitant]
     Active Substance: OXYCODONE HYDROCHLORIDE
     Indication: LUMBAR VERTEBRAL FRACTURE
     Route: 065
  20. ISOSORBIDE MONONITRATE. [Concomitant]
     Active Substance: ISOSORBIDE MONONITRATE
     Indication: MYOCARDIAL ISCHAEMIA
     Route: 065
  21. APIXABAN [Concomitant]
     Active Substance: APIXABAN
     Indication: TRANSIENT ISCHAEMIC ATTACK
     Route: 065
  22. GANGIDEN [Concomitant]
     Indication: PRODUCT USED FOR UNKNOWN INDICATION
     Route: 048
     Dates: start: 20181211
  23. BETMIGA [Concomitant]
     Active Substance: MIRABEGRON
     Indication: PROPHYLAXIS
     Dosage: IN THE MORNING
     Route: 048
     Dates: start: 20180324
  24. METOPROLOL. [Concomitant]
     Active Substance: METOPROLOL
     Indication: MYOCARDIAL ISCHAEMIA
     Route: 065
  25. RESONIUM [Concomitant]
     Active Substance: SODIUM POLYSTYRENE SULFONATE
     Indication: CEREBRAL HAEMORRHAGE
     Route: 065
  26. MACROGOL 3350 [Concomitant]
     Active Substance: POLYETHYLENE GLYCOL 3350
     Indication: PROPHYLAXIS
     Route: 065
  27. BICALUTAMIDE. [Concomitant]
     Active Substance: BICALUTAMIDE
     Indication: PROSTATE CANCER
     Dosage: IN THE MORNING
     Route: 048
     Dates: start: 20180611
  28. ATROPINE. [Concomitant]
     Active Substance: ATROPINE
     Indication: CEREBRAL HAEMORRHAGE
     Route: 065

REACTIONS (3)
  - Cardiac failure [Fatal]
  - Pneumonia [Fatal]
  - Sinus node dysfunction [Fatal]

NARRATIVE: CASE EVENT DATE: 20190128
